FAERS Safety Report 13511535 (Version 1)
Quarter: 2017Q2

REPORT INFORMATION
  Report Type: Spontaneous
  Country: CA (occurrence: CA)
  Receive Date: 20170504
  Receipt Date: 20170504
  Transmission Date: 20170830
  Serious: Yes (Other)
  Sender: FDA-Public Use
  Company Number: CA-009507513-1705CAN001395

PATIENT
  Sex: Male

DRUGS (7)
  1. ATENOLOL (+) CHLORTHALIDONE [Suspect]
     Active Substance: ATENOLOL\CHLORTHALIDONE
  2. ROSUVASTATIN. [Suspect]
     Active Substance: ROSUVASTATIN
  3. ASPIRIN. [Suspect]
     Active Substance: ASPIRIN
  4. COVERSYL (PERINDOPRIL ARGININE) [Suspect]
     Active Substance: PERINDOPRIL
  5. METFORMIN [Suspect]
     Active Substance: METFORMIN HYDROCHLORIDE
  6. EZETROL [Suspect]
     Active Substance: EZETIMIBE
  7. HIZENTRA [Suspect]
     Active Substance: HUMAN IMMUNOGLOBULIN G
     Indication: IMMUNODEFICIENCY COMMON VARIABLE
     Dosage: 16 G, 1 EVERY 1WEEK(S)
     Route: 058

REACTIONS (2)
  - Drug ineffective [Unknown]
  - Malaise [Unknown]
